FAERS Safety Report 5447380-6 (Version None)
Quarter: 2007Q3

REPORT INFORMATION
  Report Type: 
  Country: None (occurrence: None)
  Receive Date: 20070905
  Receipt Date: 20070828
  Transmission Date: 20080115
  Serious: Yes (Death)
  Sender: FDA-Public Use
  Company Number: 2007001540

PATIENT
  Age: 62 Year
  Sex: Male

DRUGS (13)
  1. ERLOTINIB (TABLET) [Suspect]
     Indication: PANCREATIC CARCINOMA
     Dosage: 150 MG (QD), ORAL
     Route: 048
     Dates: start: 20070411
  2. GEMCITABINE [Suspect]
     Indication: PANCREATIC CARCINOMA
     Dosage: 1000 MG/M2 (QW), INTRAVENOUS
     Route: 042
     Dates: start: 20070411
  3. BISOPROLOL FUMARATE [Concomitant]
  4. ALLOPURINOL [Concomitant]
  5. PANTOZOL (PANTOPRAZOLE SODIUM) [Concomitant]
  6. LYRICA [Concomitant]
  7. ARCOXIA [Concomitant]
  8. TETRA-SAAR (TETRAZEPAM) [Concomitant]
  9. POLYETHYLENE GLYCOL (MACROGOL) [Concomitant]
  10. NOVALGIN (METAMIZOLE SODIUM) [Concomitant]
  11. FENTANYL [Concomitant]
  12. INSUMAN COMB 25 (INSULIN HUMAN) [Concomitant]
  13. DALTEPARIN SODIUM [Concomitant]

REACTIONS (2)
  - MULTI-ORGAN FAILURE [None]
  - RESPIRATORY FAILURE [None]
